FAERS Safety Report 19681111 (Version 1)
Quarter: 2021Q3

REPORT INFORMATION
  Report Type: Spontaneous
  Country: EG (occurrence: EG)
  Receive Date: 20210810
  Receipt Date: 20210810
  Transmission Date: 20211014
  Serious: Yes (Death, Hospitalization, Other)
  Sender: FDA-Public Use
  Company Number: EG-SA-2021SA249804

PATIENT
  Age: 1 Year
  Sex: Male
  Weight: 7.5 kg

DRUGS (1)
  1. MYOZYME [Suspect]
     Active Substance: ALGLUCOSIDASE ALFA
     Indication: GLYCOGEN STORAGE DISEASE TYPE II
     Dosage: 3 DF (VIALS), QOW, UNITS: 3X50
     Route: 042
     Dates: start: 20201031, end: 20210703

REACTIONS (3)
  - Aspiration [Fatal]
  - Wrong technique in product usage process [Unknown]
  - Pneumonia [Fatal]

NARRATIVE: CASE EVENT DATE: 20201031
